FAERS Safety Report 5397806-1 (Version None)
Quarter: 2007Q3

REPORT INFORMATION
  Report Type: 
  Country: None (occurrence: None)
  Receive Date: 20070723
  Receipt Date: 20070712
  Transmission Date: 20080115
  Serious: Yes (Hospitalization)
  Sender: FDA-Public Use
  Company Number: GXKR2007GB06026

PATIENT
  Age: 31 Year
  Sex: Female

DRUGS (7)
  1. CLARITHROMYCIN [Suspect]
  2. AMINOPHYLLIN [Suspect]
     Dosage: INTRAVENOUS
     Route: 042
  3. AMOXICILLIN [Suspect]
     Dosage: INTRAVENOUS
     Route: 042
  4. ATROVENT [Suspect]
  5. HYDROCORTISONE [Suspect]
     Dosage: INTRAVENOUS
     Route: 011
  6. MAGNESIUM SULFATE [Suspect]
  7. SALBUTAMOL (SALBUTAMOL) [Suspect]
     Dosage: 5 MG,

REACTIONS (5)
  - ASTHMA [None]
  - CAESAREAN SECTION [None]
  - CONDITION AGGRAVATED [None]
  - DRUG EXPOSURE DURING PREGNANCY [None]
  - MATERNAL CONDITION AFFECTING FOETUS [None]
